FAERS Safety Report 16644768 (Version 2)
Quarter: 2019Q3

REPORT INFORMATION
  Report Type: Spontaneous
  Country: IT (occurrence: IT)
  Receive Date: 20190729
  Receipt Date: 20190801
  Transmission Date: 20191004
  Serious: Yes (Hospitalization, Other)
  Sender: FDA-Public Use
  Company Number: IT-JNJFOC-20190725622

PATIENT
  Age: 56 Year
  Sex: Male

DRUGS (5)
  1. AMIODARONE [Interacting]
     Active Substance: AMIODARONE
     Indication: ATRIAL FLUTTER
     Dosage: INFUSION WAS CONTINUED IN THE FIRST 24 HOURS FOR A TOTAL OF 1200 MG
     Route: 065
  2. AMIODARONE [Interacting]
     Active Substance: AMIODARONE
     Route: 065
  3. IBRUTINIB [Interacting]
     Active Substance: IBRUTINIB
     Route: 048
  4. AMIODARONE [Interacting]
     Active Substance: AMIODARONE
     Route: 065
  5. IBRUTINIB [Suspect]
     Active Substance: IBRUTINIB
     Indication: B-CELL LYMPHOMA
     Route: 048

REACTIONS (3)
  - Cardiac failure [Recovering/Resolving]
  - Atrial flutter [Unknown]
  - Drug interaction [Recovering/Resolving]
